FAERS Safety Report 14227609 (Version 8)
Quarter: 2018Q2

REPORT INFORMATION
  Report Type: Report from Study
  Country: JP (occurrence: JP)
  Receive Date: 20171127
  Receipt Date: 20180517
  Transmission Date: 20180711
  Serious: Yes (Death, Life-Threatening, Hospitalization, Other)
  Sender: FDA-Public Use
  Company Number: JP-BRISTOL-MYERS SQUIBB COMPANY-BMS-2016-045016

PATIENT
  Age: 66 Year
  Sex: Female
  Weight: 40 kg

DRUGS (10)
  1. ADONA                              /00056903/ [Concomitant]
     Active Substance: CARBAZOCHROME SODIUM SULFONATE
     Indication: DIARRHOEA
     Route: 065
  2. IPILIMUMAB [Suspect]
     Active Substance: IPILIMUMAB
     Indication: MALIGNANT MELANOMA
     Dosage: 3 MG/KG, ONE TIME DOSE
     Route: 041
     Dates: start: 20160210, end: 20160210
  3. MIYA-BM [Concomitant]
     Active Substance: CLOSTRIDIUM BUTYRICUM SPORES STRAIN M-55
     Indication: PLASMA CELL MYELOMA
     Dosage: 3 DF, UNK
     Route: 048
     Dates: start: 20150911, end: 20160509
  4. FERROUS SULFATE. [Concomitant]
     Active Substance: FERROUS SULFATE
     Indication: PLASMA CELL MYELOMA
     Dosage: 2 DF, UNK
     Route: 048
     Dates: start: 20160115, end: 20160509
  5. TRESIBA [Concomitant]
     Active Substance: INSULIN DEGLUDEC
     Indication: PRODUCT USED FOR UNKNOWN INDICATION
     Dosage: 5 IU, UNK
     Route: 042
     Dates: start: 20150907, end: 20160509
  6. ADONA                              /00056903/ [Concomitant]
     Active Substance: CARBAZOCHROME SODIUM SULFONATE
     Indication: PLASMA CELL MYELOMA
     Dosage: 90 MG, UNK
     Route: 048
     Dates: start: 20150911, end: 20160509
  7. NOVORAPID [Concomitant]
     Active Substance: INSULIN ASPART
     Indication: PRODUCT USED FOR UNKNOWN INDICATION
     Dosage: 28 IU, UNK
     Route: 065
     Dates: start: 20150907, end: 20160509
  8. OPDIVO [Suspect]
     Active Substance: NIVOLUMAB
     Indication: MALIGNANT MELANOMA
     Dosage: 2 MG/KG, QD
     Route: 041
     Dates: start: 20150508, end: 201602
  9. TRANSAMIN [Concomitant]
     Active Substance: TRANEXAMIC ACID
     Indication: PLASMA CELL MYELOMA
     Dosage: 750 MG, UNK
     Route: 048
     Dates: start: 20150911, end: 20160509
  10. URSO [Concomitant]
     Active Substance: URSODIOL
     Indication: PLASMA CELL MYELOMA
     Dosage: 300 MG, UNK
     Route: 048
     Dates: start: 20150907, end: 20160509

REACTIONS (2)
  - Malignant neoplasm progression [Fatal]
  - Liver disorder [Not Recovered/Not Resolved]

NARRATIVE: CASE EVENT DATE: 20160219
